FAERS Safety Report 8829784 (Version 4)
Quarter: 2012Q4

REPORT INFORMATION
  Report Type: 
  Country: US (occurrence: US)
  Receive Date: 20121008
  Receipt Date: 20121116
  Transmission Date: 20130627
  Serious: Yes (Hospitalization, Other)
  Sender: FDA-Public Use
  Company Number: US-ALEXION-A201201869

PATIENT
  Age: 62 Year
  Sex: Male

DRUGS (3)
  1. SOLIRIS 300MG [Suspect]
     Dosage: 1200 mg, single
     Route: 042
     Dates: start: 20120907, end: 20120907
  2. SOLIRIS 300MG [Suspect]
     Dosage: 900 mg, single
     Route: 042
     Dates: start: 20120908, end: 20120908
  3. SOLIRIS 300MG [Suspect]
     Dosage: 900 mg, qw
     Route: 042
     Dates: start: 20120914, end: 20120921

REACTIONS (5)
  - Aspergillosis [Recovering/Resolving]
  - Pericardial effusion [Recovered/Resolved]
  - Post procedural discharge [Recovered/Resolved]
  - Cardiac tamponade [Recovered/Resolved]
  - Cardiac perforation [Recovered/Resolved]
